FAERS Safety Report 8155088-1 (Version None)
Quarter: 2012Q1

REPORT INFORMATION
  Report Type: 
  Country: None (occurrence: None)
  Receive Date: 20120221
  Receipt Date: 20120217
  Transmission Date: 20120608
  Serious: Yes (Life-Threatening, Hospitalization)
  Sender: FDA-Public Use
  Company Number: CZ-B.I. PHARMACEUTICALS,INC./RIDGEFIELD-2012-AP-00145AP

PATIENT
  Sex: Male
  Weight: 112 kg

DRUGS (3)
  1. PRADAXA [Suspect]
     Indication: ATRIAL FIBRILLATION
     Dosage: 300 MG
     Dates: start: 20111201, end: 20120203
  2. BISOPROLOL FUMARATE [Concomitant]
  3. RAMIPRIL [Concomitant]

REACTIONS (2)
  - DRUG INEFFECTIVE [None]
  - EMBOLIC STROKE [None]
